FAERS Safety Report 23586578 (Version 1)
Quarter: 2024Q1

REPORT INFORMATION
  Report Type: Spontaneous
  Country: US (occurrence: US)
  Receive Date: 20240301
  Receipt Date: 20240301
  Transmission Date: 20240409
  Serious: No
  Sender: FDA-Public Use
  Company Number: US-BAXTER-2024BAX013652

PATIENT
  Age: 84 Year
  Sex: Female

DRUGS (3)
  1. MAGNESIUM SULFATE [Suspect]
     Active Substance: MAGNESIUM SULFATE\MAGNESIUM SULFATE HEPTAHYDRATE
     Indication: Blood magnesium decreased
     Dosage: UNSPECIFIED DOSE AT AN UNSPECIFIED FREQUENCY
     Route: 065
  2. LENVIMA [Suspect]
     Active Substance: LENVATINIB
     Indication: Endometrial cancer
     Dosage: 14 MG (MILLIGRAM) AT AN UNSPECIFIED FREQUENCY
     Route: 065
     Dates: start: 20230407
  3. LENVIMA [Suspect]
     Active Substance: LENVATINIB
     Dosage: DOSE REDUCED TO 10 MG AT AN UNSPECIFIED FREQUENCY
     Route: 065
     Dates: start: 202310

REACTIONS (3)
  - Thyroid function test abnormal [Unknown]
  - Diarrhoea [Unknown]
  - Nausea [Unknown]
